FAERS Safety Report 10951650 (Version 2)
Quarter: 2015Q2

REPORT INFORMATION
  Report Type: Spontaneous
  Country: US (occurrence: US)
  Receive Date: 20150324
  Receipt Date: 20150525
  Transmission Date: 20150821
  Serious: No
  Sender: FDA-Public Use
  Company Number: US-JNJFOC-20130313005

PATIENT
  Sex: Female
  Weight: 94.35 kg

DRUGS (1)
  1. RISPERDAL [Suspect]
     Active Substance: RISPERIDONE
     Indication: AFFECTIVE DISORDER
     Route: 048
     Dates: start: 1996

REACTIONS (2)
  - Product difficult to swallow [Recovered/Resolved]
  - Headache [Not Recovered/Not Resolved]
